FAERS Safety Report 25807837 (Version 1)
Quarter: 2025Q3

REPORT INFORMATION
  Report Type: Report from Study
  Country: CA (occurrence: CA)
  Receive Date: 20250916
  Receipt Date: 20250916
  Transmission Date: 20251020
  Serious: Yes (Death, Hospitalization)
  Sender: CSL BEHRING
  Company Number: CA-Vifor Pharma-VIT-2024-07493

PATIENT
  Sex: Male

DRUGS (1)
  1. KORSUVA [Suspect]
     Active Substance: DIFELIKEFALIN ACETATE
     Indication: Chronic kidney disease-associated pruritus
     Dosage: 50 ?G, TIW (EVERY HEMODIALYSIS)
     Route: 041
     Dates: start: 20240719

REACTIONS (2)
  - Death [Fatal]
  - Hospitalisation [Unknown]

NARRATIVE: CASE EVENT DATE: 20240101
